FAERS Safety Report 17165923 (Version 1)
Quarter: 2019Q4

REPORT INFORMATION
  Report Type: Spontaneous
  Country: DK (occurrence: DK)
  Receive Date: 20191217
  Receipt Date: 20191217
  Transmission Date: 20200122
  Serious: Yes (Hospitalization, Other)
  Sender: FDA-Public Use
  Company Number: DK-PFIZER INC-2019543001

PATIENT
  Age: 78 Year
  Sex: Male

DRUGS (4)
  1. MOMETASONE FUROATE. [Concomitant]
     Active Substance: MOMETASONE FUROATE
     Indication: ECZEMA
     Dosage: UNK (QD)
     Route: 003
     Dates: start: 20190207
  2. ALLOPURINOL. [Concomitant]
     Active Substance: ALLOPURINOL
     Indication: GOUT
     Dosage: 300 MG, 1X/DAY
     Route: 048
     Dates: start: 20180316
  3. PANTOPRAZOLE [Suspect]
     Active Substance: PANTOPRAZOLE
     Indication: GASTROOESOPHAGEAL REFLUX DISEASE
     Dosage: 40 MG, 1X/DAY (STARTDATO UKENDT MEN I HVERT FALD SIDEN APR2017)
     Route: 048
     Dates: end: 20191112
  4. SAMARIN [POTASSIUM SODIUM TARTRATE;SODIUM BICARBONATE;SODIUM CARBONATE [Concomitant]
     Dosage: UNK

REACTIONS (1)
  - Femoral neck fracture [Recovered/Resolved]

NARRATIVE: CASE EVENT DATE: 20191106
